FAERS Safety Report 16189394 (Version 1)
Quarter: 2019Q2

REPORT INFORMATION
  Report Type: Spontaneous
  Country: US (occurrence: US)
  Receive Date: 20190411
  Receipt Date: 20190411
  Transmission Date: 20190711
  Serious: Yes (Other)
  Sender: FDA-Public Use
  Company Number: None

PATIENT
  Age: 7 Week
  Sex: Female
  Weight: 4.82 kg

DRUGS (1)
  1. INFANTS TYLENOL [Suspect]
     Active Substance: ACETAMINOPHEN
     Indication: PYREXIA
     Dates: start: 20190410, end: 20190410

REACTIONS (2)
  - Hypopnoea [None]
  - Pallor [None]

NARRATIVE: CASE EVENT DATE: 20190410
